FAERS Safety Report 14558038 (Version 1)
Quarter: 2018Q1

REPORT INFORMATION
  Report Type: Report from Study
  Country: ES (occurrence: ES)
  Receive Date: 20180221
  Receipt Date: 20180221
  Transmission Date: 20180509
  Serious: Yes (Hospitalization)
  Sender: FDA-Public Use
  Company Number: ES-TEVA-2018-ES-857738

PATIENT
  Age: 91 Year
  Sex: Male

DRUGS (7)
  1. TORASEMIDE 10 [Suspect]
     Active Substance: TORSEMIDE
     Dosage: 1-0-0
     Route: 048
     Dates: start: 20150601
  2. ENALAPRIL 10 [Suspect]
     Active Substance: ENALAPRIL
     Dosage: 1-0-0
     Route: 048
     Dates: start: 19930101, end: 20170413
  3. SINTROM [Concomitant]
     Active Substance: ACENOCOUMAROL
     Indication: ATRIAL FIBRILLATION
     Dosage: SP
     Route: 048
     Dates: start: 20150601
  4. OMEPRAZOL 20 [Concomitant]
     Active Substance: OMEPRAZOLE
     Indication: PROPHYLAXIS AGAINST GASTROINTESTINAL ULCER
     Dosage: 1 CP
     Route: 048
     Dates: start: 20150601
  5. AVIDART 0,5 MG CAPSULAS BLANDAS , 30 C?PSULAS [Concomitant]
     Indication: BENIGN PROSTATIC HYPERPLASIA
     Dosage: 1-0-0
     Route: 048
     Dates: start: 20070101
  6. THERVAN 10 [Concomitant]
     Indication: DYSLIPIDAEMIA
     Dosage: 0-0-1
     Route: 048
     Dates: start: 19930101
  7. ALDACTONE [Suspect]
     Active Substance: SPIRONOLACTONE
     Dosage: 1-0-0
     Route: 048
     Dates: start: 20150601, end: 20170413

REACTIONS (2)
  - Hyperkalaemia [Recovered/Resolved]
  - Acute kidney injury [Recovered/Resolved]

NARRATIVE: CASE EVENT DATE: 20170412
